FAERS Safety Report 8572079-7 (Version None)
Quarter: 2012Q3

REPORT INFORMATION
  Report Type: 
  Country: None (occurrence: None)
  Receive Date: 20120806
  Receipt Date: 20120724
  Transmission Date: 20120928
  Serious: Yes (Hospitalization)
  Sender: FDA-Public Use
  Company Number: US-BAYER-2012-015878

PATIENT
  Age: 22 Year
  Sex: Female
  Weight: 64.399 kg

DRUGS (2)
  1. YAZ [Suspect]
     Indication: DYSMENORRHOEA
  2. YAZ [Suspect]
     Indication: CONTRACEPTION
     Dosage: UNK
     Dates: start: 20080701, end: 20100401

REACTIONS (4)
  - MENTAL DISORDER [None]
  - GALLBLADDER DISORDER [None]
  - INJURY [None]
  - PAIN [None]
